FAERS Safety Report 5632439-0 (Version None)
Quarter: 2008Q1

REPORT INFORMATION
  Report Type: 
  Country: None (occurrence: None)
  Receive Date: 20080220
  Receipt Date: 20080124
  Transmission Date: 20080703
  Serious: No
  Sender: FDA-Public Use
  Company Number: US-BOEHRINGER INGELHEIM GMBH, GERMANY-2008-BP-01132BP

PATIENT
  Age: 64 Year
  Sex: Female

DRUGS (3)
  1. ZANTAC 75 [Suspect]
     Indication: ULCER
     Route: 048
     Dates: start: 20080120, end: 20080124
  2. ZOCOR [Concomitant]
     Indication: BLOOD CHOLESTEROL
     Route: 048
  3. ASPIRIN [Concomitant]
     Route: 048

REACTIONS (1)
  - CHROMATURIA [None]
